FAERS Safety Report 19740097 (Version 1)
Quarter: 2021Q3

REPORT INFORMATION
  Report Type: Spontaneous
  Country: US (occurrence: US)
  Receive Date: 20210823
  Receipt Date: 20210823
  Transmission Date: 20211014
  Serious: No
  Sender: FDA-Public Use
  Company Number: NVSC2021US188388

PATIENT
  Sex: Female
  Weight: 84.01 kg

DRUGS (1)
  1. TRIAMCINOLONE [Suspect]
     Active Substance: TRIAMCINOLONE
     Indication: PRODUCT USED FOR UNKNOWN INDICATION
     Dosage: UNK UNK, TID(3 TIMES DAILY FOR 10 DAYS)
     Route: 061

REACTIONS (2)
  - Rash [Unknown]
  - Pruritus [Unknown]
